FAERS Safety Report 25400519 (Version 1)
Quarter: 2025Q2

REPORT INFORMATION
  Report Type: Spontaneous
  Country: HU (occurrence: HU)
  Receive Date: 20250605
  Receipt Date: 20250605
  Transmission Date: 20250717
  Serious: Yes (Other)
  Sender: MYLAN
  Company Number: HU-ROCHE-10000276558

PATIENT

DRUGS (16)
  1. OXALIPLATIN [Suspect]
     Active Substance: OXALIPLATIN
     Indication: Rectal cancer stage II
  2. OXALIPLATIN [Suspect]
     Active Substance: OXALIPLATIN
     Route: 065
  3. OXALIPLATIN [Suspect]
     Active Substance: OXALIPLATIN
     Route: 065
  4. OXALIPLATIN [Suspect]
     Active Substance: OXALIPLATIN
  5. CAPECITABINE [Suspect]
     Active Substance: CAPECITABINE
     Indication: Rectal cancer stage II
  6. CAPECITABINE [Suspect]
     Active Substance: CAPECITABINE
     Route: 065
  7. CAPECITABINE [Suspect]
     Active Substance: CAPECITABINE
     Route: 065
  8. CAPECITABINE [Suspect]
     Active Substance: CAPECITABINE
  9. LEUCOVORIN CALCIUM [Suspect]
     Active Substance: LEUCOVORIN CALCIUM
     Indication: Rectal cancer stage II
  10. LEUCOVORIN CALCIUM [Suspect]
     Active Substance: LEUCOVORIN CALCIUM
     Route: 065
  11. LEUCOVORIN CALCIUM [Suspect]
     Active Substance: LEUCOVORIN CALCIUM
     Route: 065
  12. LEUCOVORIN CALCIUM [Suspect]
     Active Substance: LEUCOVORIN CALCIUM
  13. FLUOROURACIL [Suspect]
     Active Substance: FLUOROURACIL
     Indication: Rectal cancer stage II
  14. FLUOROURACIL [Suspect]
     Active Substance: FLUOROURACIL
     Route: 065
  15. FLUOROURACIL [Suspect]
     Active Substance: FLUOROURACIL
     Route: 065
  16. FLUOROURACIL [Suspect]
     Active Substance: FLUOROURACIL

REACTIONS (6)
  - Neuropathy peripheral [Unknown]
  - Gastrointestinal disorder [Unknown]
  - Temperature intolerance [Unknown]
  - Ageusia [Unknown]
  - Paraesthesia oral [Unknown]
  - Fatigue [Unknown]
